FAERS Safety Report 8131230-3 (Version None)
Quarter: 2012Q1

REPORT INFORMATION
  Report Type: 
  Country: None (occurrence: None)
  Receive Date: 20120210
  Receipt Date: 20120210
  Transmission Date: 20120608
  Serious: Yes (Life-Threatening, Hospitalization)
  Sender: FDA-Public Use
  Company Number: None

PATIENT
  Age: 87 Year
  Sex: Male
  Weight: 64.8 kg

DRUGS (2)
  1. LORAZEPAM [Suspect]
     Indication: ANXIETY
     Dosage: 1 MG AT BEDTIME PO
     Route: 048
     Dates: start: 20050825, end: 20100422
  2. LORAZEPAM [Suspect]
     Indication: SLEEP DISORDER
     Dosage: 1 MG AT BEDTIME PO
     Route: 048
     Dates: start: 20050825, end: 20100422

REACTIONS (6)
  - SEDATION [None]
  - SYNCOPE [None]
  - DECREASED APPETITE [None]
  - SUICIDE ATTEMPT [None]
  - DYSPHAGIA [None]
  - INCORRECT DOSE ADMINISTERED [None]
